FAERS Safety Report 19847024 (Version 1)
Quarter: 2021Q3

REPORT INFORMATION
  Report Type: Report from Study
  Country: CA (occurrence: CA)
  Receive Date: 20210917
  Receipt Date: 20210917
  Transmission Date: 20211014
  Serious: Yes (Other)
  Sender: FDA-Public Use
  Company Number: CA-BAUSCH-BL-2020-008223

PATIENT
  Age: 59 Year
  Sex: Male

DRUGS (5)
  1. ATIVAN [Concomitant]
     Active Substance: LORAZEPAM
     Indication: PRODUCT USED FOR UNKNOWN INDICATION
     Route: 065
  2. SILIQ [Suspect]
     Active Substance: BRODALUMAB
     Indication: PSORIASIS
     Dosage: 210 MG/ 1.5 ML (AT WEEK 0, 1 AND 2)
     Route: 058
     Dates: start: 20191113, end: 201911
  3. SILIQ [Suspect]
     Active Substance: BRODALUMAB
     Dosage: 210 MG/ 1.5 ML
     Route: 058
     Dates: start: 201912
  4. CIPRALEX [Concomitant]
     Active Substance: ESCITALOPRAM OXALATE
     Indication: PRODUCT USED FOR UNKNOWN INDICATION
     Route: 065
  5. SILIQ [Suspect]
     Active Substance: BRODALUMAB
     Dosage: 210 MG/ 1.5 ML, EVERY 3?4 WEEKS
     Route: 058

REACTIONS (6)
  - Eye irritation [Unknown]
  - Product dose omission issue [Unknown]
  - Psoriasis [Not Recovered/Not Resolved]
  - Inappropriate schedule of product administration [Unknown]
  - Ankle operation [Unknown]
  - Disease recurrence [Not Recovered/Not Resolved]

NARRATIVE: CASE EVENT DATE: 202002
